FAERS Safety Report 8250992-8 (Version None)
Quarter: 2012Q2

REPORT INFORMATION
  Report Type: 
  Country: None (occurrence: None)
  Receive Date: 20120402
  Receipt Date: 20120329
  Transmission Date: 20120825
  Serious: Yes (Hospitalization, Other)
  Sender: FDA-Public Use
  Company Number: US-PFIZER INC-2011152728

PATIENT
  Sex: Male

DRUGS (5)
  1. XANAX [Concomitant]
     Indication: ANXIETY
     Dosage: 5 MG, UNK
     Dates: start: 20081001
  2. PERCOCET [Concomitant]
     Indication: PAIN
     Dosage: 5 MG, UNK
     Dates: start: 20081001
  3. CHANTIX [Suspect]
     Indication: SMOKING CESSATION THERAPY
     Dosage: UNK,
     Route: 048
     Dates: start: 20110301, end: 20110501
  4. IBUPROFEN [Concomitant]
     Indication: PAIN
     Dosage: UNK
     Dates: start: 20081001
  5. XANAX [Concomitant]
     Indication: DEPRESSION

REACTIONS (3)
  - SUICIDE ATTEMPT [None]
  - DEPRESSION [None]
  - INTENTIONAL OVERDOSE [None]
